FAERS Safety Report 9514491 (Version 1)
Quarter: 2013Q3

REPORT INFORMATION
  Report Type: Spontaneous
  Country: US (occurrence: US)
  Receive Date: 20130911
  Receipt Date: 20130911
  Transmission Date: 20140515
  Serious: No
  Sender: FDA-Public Use
  Company Number: US-B.I. PHARMACEUTICALS,INC./RIDGEFIELD-2013-BI-26966BP

PATIENT
  Age: 97 Year
  Sex: Male
  Weight: 76 kg

DRUGS (8)
  1. COMBIVENT [Suspect]
     Indication: ASTHMA
     Dosage: DOSE PER APPLICATION: 20 MCG / 100 MCG; DAILY DOSE: 160MCG/800MCG
     Route: 055
     Dates: start: 20130819
  2. COMBIVENT [Suspect]
     Indication: ASTHMA
     Dosage: DOSE PER APPLICATION: 18 MCG / 103 MCG; DAILY DOSE: 144MCG/824MCG
     Route: 055
     Dates: start: 2003, end: 20130819
  3. GLIMEPIRIDE [Concomitant]
     Indication: TYPE 2 DIABETES MELLITUS
     Dosage: 1 MG
     Route: 048
  4. METOPROLOL ER [Concomitant]
     Indication: HYPERTENSION
     Dosage: 25 MG
     Route: 048
  5. SIMVASTATIN [Concomitant]
     Indication: BLOOD CHOLESTEROL INCREASED
     Dosage: 40 MG
     Route: 048
  6. DONEPEZIL [Concomitant]
     Indication: DEMENTIA
     Dosage: 10 MG
     Route: 048
  7. HYDROCHLOROTHIAZIDE [Concomitant]
     Indication: HYPERTENSION
     Dosage: 12.5 MG
     Route: 048
  8. B 12 [Concomitant]
     Dosage: 500 MG

REACTIONS (4)
  - Dementia [Not Recovered/Not Resolved]
  - Prescribed overdose [Not Recovered/Not Resolved]
  - Off label use [Recovered/Resolved]
  - Off label use [Not Recovered/Not Resolved]
